FAERS Safety Report 7083201-6 (Version None)
Quarter: 2010Q4

REPORT INFORMATION
  Report Type: 
  Country: None (occurrence: None)
  Receive Date: 20101104
  Receipt Date: 20090303
  Transmission Date: 20110411
  Serious: No
  Sender: FDA-Public Use
  Company Number: US-KINGPHARMUSA00001-K200900241

PATIENT
  Age: 45 Year
  Sex: Female

DRUGS (5)
  1. FLECTOR [Suspect]
     Indication: MYALGIA
     Dosage: 1 PATCH, PRN
     Route: 061
     Dates: start: 20090201, end: 20090201
  2. FLECTOR [Suspect]
     Dosage: 1 PATCH, PRN
     Route: 061
     Dates: start: 20090201
  3. ANALGESICS [Concomitant]
     Indication: BACK PAIN
     Dosage: UNK
     Route: 048
  4. ANALGESICS [Concomitant]
     Dosage: UNK
     Route: 008
  5. METHADONE [Concomitant]
     Dosage: UNK
     Route: 048

REACTIONS (1)
  - CHROMATURIA [None]
